FAERS Safety Report 17986985 (Version 2)
Quarter: 2020Q3

REPORT INFORMATION
  Report Type: Report from Study
  Country: None (occurrence: US)
  Receive Date: 20200706
  Receipt Date: 20200902
  Transmission Date: 20201103
  Serious: Yes (Other)
  Sender: FDA-Public Use
  Company Number: US-ABBVIE-19K-163-2970418-00

PATIENT
  Sex: Male

DRUGS (3)
  1. HUMIRA [Suspect]
     Active Substance: ADALIMUMAB
     Route: 058
     Dates: start: 2019
  2. HUMIRA [Suspect]
     Active Substance: ADALIMUMAB
     Indication: COLITIS ULCERATIVE
     Route: 058
     Dates: start: 201706, end: 2019
  3. METHOTREXATE. [Concomitant]
     Active Substance: METHOTREXATE
     Indication: PRODUCT USED FOR UNKNOWN INDICATION

REACTIONS (16)
  - Osteoarthritis [Recovered/Resolved]
  - Nephrolithiasis [Unknown]
  - Cataract [Unknown]
  - Musculoskeletal foreign body [Unknown]
  - Allergic oedema [Unknown]
  - Seasonal allergy [Unknown]
  - Gastrointestinal disorder [Unknown]
  - Nephrolithiasis [Recovered/Resolved]
  - Intentional product misuse [Unknown]
  - Joint injury [Unknown]
  - Fall [Unknown]
  - Anal incontinence [Recovering/Resolving]
  - Abdominal discomfort [Unknown]
  - Nasopharyngitis [Recovered/Resolved]
  - Colitis ulcerative [Recovered/Resolved]
  - Epstein-Barr virus infection [Recovered/Resolved]

NARRATIVE: CASE EVENT DATE: 2017
